FAERS Safety Report 5628516-0 (Version None)
Quarter: 2008Q1

REPORT INFORMATION
  Report Type: 
  Country: None (occurrence: None)
  Receive Date: 20080215
  Receipt Date: 20080206
  Transmission Date: 20080703
  Serious: Yes (Hospitalization)
  Sender: FDA-Public Use
  Company Number: SE-PFIZER INC-2008011251

PATIENT
  Sex: Male

DRUGS (8)
  1. PREDNISOLONE [Suspect]
     Indication: COLITIS ULCERATIVE
     Route: 048
     Dates: start: 20060607, end: 20060801
  2. AZATIOPRIN [Suspect]
     Indication: COLITIS ULCERATIVE
     Route: 048
     Dates: start: 20060607, end: 20060801
  3. INFLIXIMAB [Suspect]
     Indication: COLITIS ULCERATIVE
     Route: 042
     Dates: start: 20060607, end: 20060801
  4. MESALAMINE [Concomitant]
     Route: 048
  5. DIPENTUM [Concomitant]
  6. PRED-CLYSMA [Concomitant]
     Route: 054
  7. METRONIDAZOLE HCL [Concomitant]
  8. CIPROFLOXACIN [Concomitant]

REACTIONS (1)
  - ENDOCRINE NEOPLASM MALIGNANT [None]
